FAERS Safety Report 20225916 (Version 2)
Quarter: 2022Q1

REPORT INFORMATION
  Report Type: Report from Study
  Country: US (occurrence: US)
  Receive Date: 20211224
  Receipt Date: 20220225
  Transmission Date: 20220424
  Serious: Yes (Death)
  Sender: FDA-Public Use
  Company Number: US-INSMED, INC.-2021-10432-US

PATIENT
  Age: 69 Year
  Sex: Female

DRUGS (1)
  1. ARIKAYCE [Suspect]
     Active Substance: AMIKACIN
     Indication: Mycobacterial infection
     Dosage: UNK, QD
     Route: 055
     Dates: start: 20190813

REACTIONS (2)
  - Death [Fatal]
  - Device issue [Unknown]

NARRATIVE: CASE EVENT DATE: 20211127
